FAERS Safety Report 7919529-4 (Version None)
Quarter: 2011Q4

REPORT INFORMATION
  Report Type: 
  Country: None (occurrence: None)
  Receive Date: 20111116
  Receipt Date: 20111116
  Transmission Date: 20120403
  Serious: Yes (Hospitalization)
  Sender: FDA-Public Use
  Company Number: None

PATIENT
  Age: 49 Year
  Sex: Female
  Weight: 25.2654 kg

DRUGS (11)
  1. AVASTIN [Concomitant]
  2. COMPAZINE [Concomitant]
  3. ATIVAN [Concomitant]
  4. LEUCOVORIN CALCIUM [Suspect]
  5. ZOFRAN [Concomitant]
  6. OXALIPLATIN [Suspect]
  7. FLUOROURACIL [Suspect]
  8. FOLFOX/AVASTIN [Concomitant]
  9. IMODIUM [Concomitant]
  10. LOMOTIL [Concomitant]
  11. RAD001 [Concomitant]

REACTIONS (1)
  - PANCREATITIS ACUTE [None]
